FAERS Safety Report 7000847-1 (Version None)
Quarter: 2010Q3

REPORT INFORMATION
  Report Type: 
  Country: None (occurrence: None)
  Receive Date: 20100920
  Receipt Date: 20091105
  Transmission Date: 20110219
  Serious: No
  Sender: FDA-Public Use
  Company Number: US-ASTRAZENECA-2009SE11406

PATIENT
  Sex: Female

DRUGS (5)
  1. SEROQUEL [Suspect]
     Route: 048
     Dates: start: 20080101, end: 20090817
  2. SEROQUEL [Suspect]
     Route: 048
     Dates: start: 20090817, end: 20090825
  3. SEROQUEL [Suspect]
     Route: 048
     Dates: start: 20090824, end: 20090825
  4. SEROQUEL [Suspect]
     Route: 048
     Dates: start: 20090825
  5. CLONOPIN [Concomitant]

REACTIONS (6)
  - ANXIETY [None]
  - BLOOD CHOLESTEROL INCREASED [None]
  - DRUG DOSE OMISSION [None]
  - ILL-DEFINED DISORDER [None]
  - INSOMNIA [None]
  - NAUSEA [None]
